FAERS Safety Report 9810627 (Version 1)
Quarter: 2014Q1

REPORT INFORMATION
  Report Type: Spontaneous
  Country: US (occurrence: US)
  Receive Date: 20140110
  Receipt Date: 20140110
  Transmission Date: 20141002
  Serious: Yes (Hospitalization)
  Sender: FDA-Public Use
  Company Number: US-SANOFI-AVENTIS-2013SA089368

PATIENT
  Sex: Female
  Weight: 54.43 kg

DRUGS (7)
  1. PLAVIX [Suspect]
     Route: 065
  2. CLOPIDOGREL BISULFATE [Suspect]
     Route: 065
     Dates: end: 20130903
  3. HYZAAR [Concomitant]
  4. METOPROLOL [Concomitant]
  5. SYNTHROID [Concomitant]
  6. PREDNISONE [Concomitant]
     Indication: ARTHRALGIA
  7. ELIQUIS [Concomitant]
     Route: 065
     Dates: start: 20130904

REACTIONS (2)
  - Gastric ulcer [Unknown]
  - Drug ineffective [Unknown]
